FAERS Safety Report 24299341 (Version 1)
Quarter: 2024Q3

REPORT INFORMATION
  Report Type: Spontaneous
  Country: US (occurrence: None)
  Receive Date: 20240906
  Receipt Date: 20240906
  Transmission Date: 20241017
  Serious: Yes (unspecified)
  Sender: Public
  Company Number: None

PATIENT
  Age: 75 Year
  Sex: Male
  Weight: 57 kg

DRUGS (1)
  1. LIDOCAINE [Suspect]
     Active Substance: LIDOCAINE
     Indication: Off label use
     Dosage: OTHER FREQUENCY : MINUTE;?
     Route: 041
     Dates: start: 20240711, end: 20240711

REACTIONS (2)
  - Bradycardia [None]
  - Hypotension [None]

NARRATIVE: CASE EVENT DATE: 20240711
